FAERS Safety Report 8740591 (Version 4)
Quarter: 2012Q4

REPORT INFORMATION
  Report Type: 
  Country: US (occurrence: US)
  Receive Date: 20120823
  Receipt Date: 20121023
  Transmission Date: 20130627
  Serious: Yes (Hospitalization, Other)
  Sender: FDA-Public Use
  Company Number: US-009507513-2012SP022369

PATIENT

DRUGS (1)
  1. NUVARING [Suspect]
     Indication: CONTRACEPTION
     Dates: end: 201005

REACTIONS (39)
  - Lobar pneumonia [Unknown]
  - Anxiety [Not Recovered/Not Resolved]
  - Depression [Unknown]
  - Fatigue [Unknown]
  - Ligament sprain [Unknown]
  - Gastrooesophageal reflux disease [Unknown]
  - Goitre [Unknown]
  - Acute sinusitis [Unknown]
  - Headache [Recovering/Resolving]
  - Insomnia [Unknown]
  - Stress [Unknown]
  - Arthralgia [Recovering/Resolving]
  - Abnormal weight gain [Unknown]
  - Vaginitis bacterial [Not Recovered/Not Resolved]
  - Nonspecific reaction [Unknown]
  - Vulvovaginal candidiasis [Unknown]
  - Cervix carcinoma [Unknown]
  - Tympanic membrane perforation [Unknown]
  - Otitis media acute [Unknown]
  - Spinal osteoarthritis [Unknown]
  - Alcohol use [Unknown]
  - Victim of crime [Unknown]
  - Craniocerebral injury [Unknown]
  - Laceration [Unknown]
  - Laceration [Unknown]
  - Urinary tract infection [Unknown]
  - Migraine [Unknown]
  - Hepatosplenomegaly [Unknown]
  - Pleuritic pain [Unknown]
  - Pulmonary embolism [Unknown]
  - Bronchitis [Not Recovered/Not Resolved]
  - Aspiration pleural cavity [Unknown]
  - Cystitis [Unknown]
  - Pyelonephritis [Unknown]
  - Upper respiratory tract infection [Unknown]
  - Rhinitis allergic [Unknown]
  - Bronchitis [Unknown]
  - Ovarian cyst [Unknown]
  - Hepatomegaly [Unknown]
